FAERS Safety Report 20637233 (Version 7)
Quarter: 2022Q4

REPORT INFORMATION
  Report Type: Report from Study
  Country: DE (occurrence: None)
  Receive Date: 20220325
  Receipt Date: 20221209
  Transmission Date: 20230113
  Serious: Yes (Hospitalization)
  Sender: FDA-Public Use
  Company Number: DE-ROCHE-3053298

PATIENT
  Age: 67 Year
  Sex: Female
  Weight: 62.4 kg

DRUGS (33)
  1. ATEZOLIZUMAB [Suspect]
     Active Substance: ATEZOLIZUMAB
     Indication: Triple negative breast cancer
     Dosage: DATE OF LAST DOSE PRIOR TO SAE: 04/FEB/2022, 24/MAR/2022
     Route: 041
     Dates: start: 20211126
  2. PACLITAXEL [Suspect]
     Active Substance: PACLITAXEL
     Indication: Triple negative breast cancer
     Dosage: DATE OF LAST DOSE PRIOR TO SAE: 04/FEB/2022, 18/FEB/2022
     Route: 042
     Dates: start: 20211126
  3. PACLITAXEL [Suspect]
     Active Substance: PACLITAXEL
     Route: 042
     Dates: start: 20220218
  4. CARBOPLATIN [Suspect]
     Active Substance: CARBOPLATIN
     Indication: Triple negative breast cancer
     Dosage: DATE OF LAST DOSE PRIOR TO SAE: 04/FEB/2022, 18/FEB/2022
     Route: 042
     Dates: start: 20211126
  5. CARBOPLATIN [Suspect]
     Active Substance: CARBOPLATIN
     Route: 042
     Dates: start: 20220218
  6. CYCLOPHOSPHAMIDE [Suspect]
     Active Substance: CYCLOPHOSPHAMIDE
     Indication: Triple negative breast cancer
     Dosage: DATE OF LAST DOSE PRIOR TO SAE: 24/MAR/2022
     Route: 042
     Dates: start: 20220303
  7. EPIRUBICIN [Suspect]
     Active Substance: EPIRUBICIN
     Indication: Triple negative breast cancer
     Dosage: DATE OF LAST DOSE PRIOR TO SAE: 24/MAR/2022
     Route: 042
     Dates: start: 20220303
  8. CIMETIDINE [Concomitant]
     Active Substance: CIMETIDINE
     Dates: start: 20211126
  9. CLEMASTINE [Concomitant]
     Active Substance: CLEMASTINE
     Dates: start: 20211126
  10. DEXAMETHASONE [Concomitant]
     Active Substance: DEXAMETHASONE
     Dates: start: 20211126
  11. METHOTREXATE [Concomitant]
     Active Substance: METHOTREXATE
     Dates: start: 20150715
  12. METHOTREXATE [Concomitant]
     Active Substance: METHOTREXATE
     Dates: start: 20160715
  13. CIPROFLOXACIN [Concomitant]
     Active Substance: CIPROFLOXACIN
     Dates: start: 20220310, end: 20220315
  14. CIPROFLOXACIN [Concomitant]
     Active Substance: CIPROFLOXACIN
     Dates: start: 20220407, end: 20220412
  15. FILGRASTIM [Concomitant]
     Active Substance: FILGRASTIM
     Route: 058
     Dates: start: 20220103, end: 20220103
  16. FILGRASTIM [Concomitant]
     Active Substance: FILGRASTIM
     Dates: start: 20220111, end: 20220111
  17. FILGRASTIM [Concomitant]
     Active Substance: FILGRASTIM
     Dosage: ONCE
     Route: 065
     Dates: start: 20220215, end: 20220215
  18. FILGRASTIM [Concomitant]
     Active Substance: FILGRASTIM
     Dosage: ONCE
     Dates: start: 20220407, end: 20220407
  19. BISOPROLOL [Concomitant]
     Active Substance: BISOPROLOL
  20. CHOLECALCIFEROL [Concomitant]
     Active Substance: CHOLECALCIFEROL
     Dosage: 20000 I.E OTHER
  21. ESTRIOL [Concomitant]
     Active Substance: ESTRIOL
     Dates: start: 19940716
  22. VITAMIN C [Concomitant]
     Active Substance: ASCORBIC ACID
     Dates: start: 20220215, end: 20220215
  23. PREDNITOP CREAM [Concomitant]
     Dates: start: 20220210, end: 20220331
  24. ONDANSETRON [Concomitant]
     Active Substance: ONDANSETRON
     Dates: start: 20211126
  25. HUMAN RED BLOOD CELL [Concomitant]
     Active Substance: HUMAN RED BLOOD CELL
     Dates: start: 20220215, end: 20220216
  26. HUMAN RED BLOOD CELL [Concomitant]
     Active Substance: HUMAN RED BLOOD CELL
     Dates: start: 20220414, end: 20220414
  27. METHOTREXATE [Concomitant]
     Active Substance: METHOTREXATE
     Dates: start: 20150715
  28. METHOTREXATE [Concomitant]
     Active Substance: METHOTREXATE
     Dates: start: 20160715
  29. PYRIDOXINE HYDROCHLORIDE\THIAMINE HYDROCHLORIDE [Concomitant]
     Active Substance: PYRIDOXINE HYDROCHLORIDE\THIAMINE HYDROCHLORIDE
     Dates: start: 20220414, end: 20220414
  30. PYRIDOXINE HYDROCHLORIDE\THIAMINE HYDROCHLORIDE [Concomitant]
     Active Substance: PYRIDOXINE HYDROCHLORIDE\THIAMINE HYDROCHLORIDE
     Dates: start: 20220215, end: 20220215
  31. DOXYLAMINE SUCCINATE [Concomitant]
     Active Substance: DOXYLAMINE SUCCINATE
  32. GINGER [Concomitant]
     Active Substance: GINGER
  33. DOXYLAMINE SUCCINATE [Concomitant]
     Active Substance: DOXYLAMINE SUCCINATE

REACTIONS (2)
  - Anaemia [Recovered/Resolved with Sequelae]
  - Anaemia [Recovered/Resolved with Sequelae]

NARRATIVE: CASE EVENT DATE: 20220210
